FAERS Safety Report 4537551-5 (Version None)
Quarter: 2004Q4

REPORT INFORMATION
  Report Type: 
  Country: None (occurrence: None)
  Receive Date: 20041221
  Receipt Date: 20041104
  Transmission Date: 20050328
  Serious: No
  Sender: FDA-Public Use
  Company Number: A-US2004-08007

PATIENT
  Age: 52 Year
  Sex: Male

DRUGS (3)
  1. TRACLEER [Suspect]
     Indication: PULMONARY HYPERTENSION
     Dosage: 62.5 MG, BID, ORAL
     Route: 048
     Dates: start: 20041018, end: 20041022
  2. WARFARIN SODIUM [Concomitant]
  3. SERZONE [Concomitant]

REACTIONS (5)
  - DIZZINESS [None]
  - FLUSHING [None]
  - MALAISE [None]
  - PALPITATIONS [None]
  - VERTIGO [None]
